FAERS Safety Report 9473705 (Version 1)
Quarter: 2013Q3

REPORT INFORMATION
  Report Type: Spontaneous
  Country: US (occurrence: US)
  Receive Date: 20130823
  Receipt Date: 20130823
  Transmission Date: 20140515
  Serious: No
  Sender: FDA-Public Use
  Company Number: US-BRISTOL-MYERS SQUIBB COMPANY-16914327

PATIENT
  Age: 56 Year
  Sex: Male
  Weight: 134.69 kg

DRUGS (5)
  1. SPRYCEL [Suspect]
     Dates: start: 201204
  2. LOTREL [Concomitant]
  3. METHADONE [Concomitant]
  4. VICODIN [Concomitant]
  5. XANAX [Concomitant]

REACTIONS (1)
  - Dysgeusia [Unknown]
